FAERS Safety Report 23696280 (Version 8)
Quarter: 2024Q4

REPORT INFORMATION
  Report Type: Spontaneous
  Country: US (occurrence: US)
  Receive Date: 20240402
  Receipt Date: 20241230
  Transmission Date: 20250114
  Serious: No
  Sender: GLAXOSMITHKLINE
  Company Number: US-GLAXOSMITHKLINE-US2024038647

PATIENT
  Age: 61 Year
  Sex: Female

DRUGS (3)
  1. ZEJULA [Suspect]
     Active Substance: NIRAPARIB
     Indication: Ovarian cancer
     Dosage: 200 MG, QD 1 TAB
     Dates: start: 20240313
  2. ZEJULA [Suspect]
     Active Substance: NIRAPARIB
     Dosage: 200 MG, QD
  3. ZEJULA [Suspect]
     Active Substance: NIRAPARIB
     Dosage: 200 MG, QD
     Dates: start: 20241129

REACTIONS (13)
  - Pain in extremity [Unknown]
  - Pruritus [Unknown]
  - Memory impairment [Unknown]
  - Acne [Recovered/Resolved]
  - Miliaria [Unknown]
  - Weight increased [Unknown]
  - Urinary tract infection [Unknown]
  - Anxiety [Unknown]
  - Constipation [Unknown]
  - Post procedural infection [Recovering/Resolving]
  - Mastectomy [Unknown]
  - Nausea [Recovering/Resolving]
  - Product dose omission in error [Unknown]

NARRATIVE: CASE EVENT DATE: 20240301
